FAERS Safety Report 8311823-0 (Version None)
Quarter: 2012Q2

REPORT INFORMATION
  Report Type: 
  Country: None (occurrence: None)
  Receive Date: 20120425
  Receipt Date: 20120419
  Transmission Date: 20120825
  Serious: Yes (Hospitalization, Other)
  Sender: FDA-Public Use
  Company Number: US-PFIZER INC-2012099894

PATIENT
  Age: 96 Year
  Sex: Male

DRUGS (6)
  1. LOSARTAN POTASSIUM AND HYDROCHLOROTHIAZIDE [Concomitant]
     Indication: HYPERTENSION
     Dosage: 40/12.5 1X/DAY
  2. ONGLYZA [Concomitant]
     Indication: DIABETES MELLITUS
     Dosage: 5 MG, 1X/DAY
  3. LIPITOR [Suspect]
     Indication: HYPERLIPIDAEMIA
     Dosage: 10 MG, 1X/DAY
     Dates: end: 20120301
  4. LATANOPROST [Concomitant]
     Dosage: 0.005% 1 GTT, 1 DROP LEFT EYE AT BED TIME
     Route: 047
  5. ACETYLSALICYLIC ACID [Concomitant]
     Dosage: 81 MG, 1X/DAY
     Route: 048
  6. COLCHICINE [Interacting]
     Indication: GOUT
     Dosage: 0.6 MG, 2X/DAY
     Dates: start: 20120301, end: 20120301

REACTIONS (7)
  - DEHYDRATION [None]
  - RENAL FAILURE ACUTE [None]
  - DRUG INTERACTION [None]
  - DIARRHOEA [None]
  - ASTHENIA [None]
  - GOUT [None]
  - RHABDOMYOLYSIS [None]
